FAERS Safety Report 4478311-3 (Version None)
Quarter: 2004Q4

REPORT INFORMATION
  Report Type: 
  Country: None (occurrence: None)
  Receive Date: 20041019
  Receipt Date: 20041012
  Transmission Date: 20050328
  Serious: Yes (Hospitalization)
  Sender: FDA-Public Use
  Company Number: DE-ROCHE-382835

PATIENT
  Age: 55 Year
  Sex: Female
  Weight: 72 kg

DRUGS (5)
  1. PEG-INTERFERON A-2A (RO 25-8310) [Suspect]
     Route: 058
     Dates: start: 20040811, end: 20041007
  2. BLINDED ADEFOVIR DIPOVIXIL [Suspect]
     Route: 048
     Dates: start: 20040811, end: 20041007
  3. DOCITON [Concomitant]
     Dates: start: 20030627
  4. UNAT [Concomitant]
     Dates: start: 20030627
  5. SPIRONOLACTONE [Concomitant]
     Dates: start: 20030627

REACTIONS (1)
  - HEPATIC FAILURE [None]
